FAERS Safety Report 15648625 (Version 1)
Quarter: 2018Q4

REPORT INFORMATION
  Report Type: Spontaneous
  Country: US (occurrence: US)
  Receive Date: 20181122
  Receipt Date: 20181122
  Transmission Date: 20190205
  Serious: No
  Sender: FDA-Public Use
  Company Number: US-TEVA-2018-US-974229

PATIENT
  Age: 19 Year
  Sex: Female

DRUGS (5)
  1. ESCITALOPRAM [Suspect]
     Active Substance: ESCITALOPRAM OXALATE
     Indication: GENERALISED ANXIETY DISORDER
     Dates: start: 201807
  2. ESCITALOPRAM [Suspect]
     Active Substance: ESCITALOPRAM OXALATE
     Route: 065
  3. ESCITALOPRAM [Suspect]
     Active Substance: ESCITALOPRAM OXALATE
     Route: 065
     Dates: start: 2017
  4. ESCITALOPRAM [Suspect]
     Active Substance: ESCITALOPRAM OXALATE
  5. ESCITALOPRAM [Suspect]
     Active Substance: ESCITALOPRAM OXALATE
     Route: 065
     Dates: end: 20181010

REACTIONS (12)
  - Feeling abnormal [Recovering/Resolving]
  - Withdrawal syndrome [Recovering/Resolving]
  - Dizziness [Recovering/Resolving]
  - Burning sensation [Recovering/Resolving]
  - Disorganised speech [Recovering/Resolving]
  - Irritability [Recovering/Resolving]
  - Anger [Recovering/Resolving]
  - Alopecia [Recovering/Resolving]
  - Crying [Recovering/Resolving]
  - Influenza like illness [Recovering/Resolving]
  - Paraesthesia [Recovering/Resolving]
  - Agitation [Recovering/Resolving]

NARRATIVE: CASE EVENT DATE: 2017
